FAERS Safety Report 7292831-8 (Version None)
Quarter: 2011Q1

REPORT INFORMATION
  Report Type: 
  Country: None (occurrence: None)
  Receive Date: 20110203
  Receipt Date: 20110119
  Transmission Date: 20110831
  Serious: Yes (Hospitalization, Disabling)
  Sender: FDA-Public Use
  Company Number: 025282

PATIENT
  Age: 64 Year
  Sex: Female

DRUGS (8)
  1. NIFEREX [Concomitant]
  2. ASACOL [Concomitant]
  3. IMURAN [Concomitant]
  4. FOSAMAX [Concomitant]
  5. ALBUMIN (HUMAN) [Concomitant]
  6. CIMZIA [Suspect]
     Dosage: 400 MG 1X/2 WEEKS, SUBCUTANEOUS
     Route: 058
     Dates: start: 20100624, end: 20101021
  7. FERROUS SULFATE TAB [Concomitant]
  8. PREDNISONE [Concomitant]

REACTIONS (45)
  - VOMITING [None]
  - CLOSTRIDIAL INFECTION [None]
  - FATIGUE [None]
  - TACHYCARDIA [None]
  - NECROSIS ISCHAEMIC [None]
  - NORMOCHROMIC NORMOCYTIC ANAEMIA [None]
  - RED BLOOD CELL SCHISTOCYTES PRESENT [None]
  - RASH ERYTHEMATOUS [None]
  - SEPTIC SHOCK [None]
  - C-REACTIVE PROTEIN INCREASED [None]
  - INTESTINAL PERFORATION [None]
  - CHOLELITHIASIS [None]
  - HYDRONEPHROSIS [None]
  - THROMBOCYTOPENIA [None]
  - STAPHYLOCOCCAL INFECTION [None]
  - ABDOMINAL TENDERNESS [None]
  - HYPERBILIRUBINAEMIA [None]
  - RENAL FAILURE ACUTE [None]
  - ASTHENIA [None]
  - ABDOMINAL PAIN [None]
  - POST PROCEDURAL COMPLICATION [None]
  - RHABDOMYOLYSIS [None]
  - RASH MACULAR [None]
  - ENTEROVESICAL FISTULA [None]
  - COLITIS ULCERATIVE [None]
  - CARDIAC FAILURE [None]
  - ABDOMINAL DISTENSION [None]
  - CARDIAC DISORDER [None]
  - INFECTION [None]
  - WEIGHT DECREASED [None]
  - COMPARTMENT SYNDROME [None]
  - CIRCULATORY COLLAPSE [None]
  - HEPATITIS CHOLESTATIC [None]
  - POST PROCEDURAL SEPSIS [None]
  - RETCHING [None]
  - PROCEDURAL HYPOTENSION [None]
  - LEG AMPUTATION [None]
  - CROHN'S DISEASE [None]
  - GENERALISED OEDEMA [None]
  - ECCHYMOSIS [None]
  - NEPHROLITHIASIS [None]
  - NAUSEA [None]
  - ARTERIAL THROMBOSIS [None]
  - ASCITES [None]
  - DISSEMINATED INTRAVASCULAR COAGULATION [None]
